FAERS Safety Report 4523795-5 (Version None)
Quarter: 2004Q4

REPORT INFORMATION
  Report Type: 
  Country: None (occurrence: None)
  Receive Date: 20041210
  Receipt Date: 20041210
  Transmission Date: 20050328
  Serious: Yes (Other)
  Sender: FDA-Public Use
  Company Number: None

PATIENT
  Age: 52 Year
  Sex: Female
  Weight: 77.1115 kg

DRUGS (15)
  1. AUGMENTIN '500' [Suspect]
     Indication: ABSCESS DRAINAGE
     Dosage: 500 MG  EVERY 8 HOURS ORAL
     Route: 048
     Dates: start: 20041204, end: 20041205
  2. FERROUS SULFATE TAB [Concomitant]
  3. COLACE [Concomitant]
  4. ASPIRIN [Concomitant]
  5. THIAMINE [Concomitant]
  6. FOLIC ACID [Concomitant]
  7. MULTI-VITAMIN [Concomitant]
  8. PERCOCET [Concomitant]
  9. ZOFRAN [Concomitant]
  10. TYLENOL (CAPLET) [Concomitant]
  11. ATENOLOL [Concomitant]
  12. LISINOPRIL [Concomitant]
  13. HYDROCHLOROTHIAZIDE [Concomitant]
  14. NORVASC [Concomitant]
  15. HYDRALAZINE [Concomitant]

REACTIONS (2)
  - RASH PRURITIC [None]
  - URTICARIA [None]
